FAERS Safety Report 18288198 (Version 2)
Quarter: 2020Q4

REPORT INFORMATION
  Report Type: Spontaneous
  Country: SG (occurrence: SG)
  Receive Date: 20200921
  Receipt Date: 20201002
  Transmission Date: 20210113
  Serious: Yes (Other)
  Sender: FDA-Public Use
  Company Number: SG-BAYER-2020-196478

PATIENT
  Age: 31 Year
  Sex: Female

DRUGS (1)
  1. MIRENA [Suspect]
     Active Substance: LEVONORGESTREL
     Indication: CONTRACEPTION
     Dosage: 20 ?G PER DAY, CONTINUOUSLY
     Route: 015
     Dates: start: 20180704, end: 20200903

REACTIONS (4)
  - Complication of device removal [None]
  - Device difficult to use [None]
  - Device breakage [Recovered/Resolved]
  - Device issue [None]

NARRATIVE: CASE EVENT DATE: 20200903
